FAERS Safety Report 20568561 (Version 2)
Quarter: 2022Q2

REPORT INFORMATION
  Report Type: Spontaneous
  Country: SE (occurrence: SE)
  Receive Date: 20220308
  Receipt Date: 20220414
  Transmission Date: 20220721
  Serious: Yes (Other)
  Sender: FDA-Public Use
  Company Number: SE-PFIZER INC-202200344814

PATIENT
  Age: 61 Year
  Sex: Male

DRUGS (1)
  1. RAPAMUNE [Suspect]
     Active Substance: SIROLIMUS
     Indication: Renal transplant
     Dosage: UNK

REACTIONS (10)
  - Anaphylactic shock [Unknown]
  - Swollen tongue [Unknown]
  - Pharyngeal swelling [Unknown]
  - Blood pressure fluctuation [Unknown]
  - Fatigue [Unknown]
  - Pyrexia [Unknown]
  - Gastritis [Unknown]
  - Stomatitis [Unknown]
  - Micturition disorder [Unknown]
  - Mouth swelling [Unknown]
